FAERS Safety Report 8384787-1 (Version None)
Quarter: 2012Q2

REPORT INFORMATION
  Report Type: 
  Country: None (occurrence: None)
  Receive Date: 20120524
  Receipt Date: 20120517
  Transmission Date: 20120825
  Serious: Yes (Other)
  Sender: FDA-Public Use
  Company Number: CA-JNJFOC-20120515438

PATIENT
  Sex: Female
  Weight: 54.43 kg

DRUGS (1)
  1. SIMPONI [Suspect]
     Indication: RHEUMATOID ARTHRITIS
     Route: 058
     Dates: start: 20101027, end: 20120403

REACTIONS (3)
  - EAR INFECTION [None]
  - SKIN CANCER [None]
  - DERMATITIS PSORIASIFORM [None]
